FAERS Safety Report 24106835 (Version 2)
Quarter: 2024Q3

REPORT INFORMATION
  Report Type: Report from Study
  Country: US (occurrence: US)
  Receive Date: 20240717
  Receipt Date: 20240725
  Transmission Date: 20241016
  Serious: Yes (Death, Other)
  Sender: JAZZ
  Company Number: US-JAZZ PHARMACEUTICALS-2023-US-023171

PATIENT
  Age: 16 Year
  Sex: Female
  Weight: 30.9 kg

DRUGS (21)
  1. EPIDIOLEX [Suspect]
     Active Substance: CANNABIDIOL
     Indication: Cerebral palsy
     Dosage: 250 MILLIGRAM, BID
     Route: 048
     Dates: start: 20220502
  2. EPIDIOLEX [Suspect]
     Active Substance: CANNABIDIOL
     Indication: Epilepsy
     Dosage: 3 MILLILITER, BID
     Route: 048
     Dates: start: 202112
  3. EPIDIOLEX [Suspect]
     Active Substance: CANNABIDIOL
     Indication: Seizure
     Dosage: 3 MILLILITER, BID
     Dates: start: 20211110, end: 20240613
  4. KEPPRA [Concomitant]
     Active Substance: LEVETIRACETAM
  5. ZONISAMIDE [Concomitant]
     Active Substance: ZONISAMIDE
  6. CLONIDINE HYDROCHLORIDE [Concomitant]
     Active Substance: CLONIDINE HYDROCHLORIDE
  7. GABAPENTIN [Concomitant]
     Active Substance: GABAPENTIN
  8. BACLOFEN [Concomitant]
     Active Substance: BACLOFEN
  9. ZYRTEC [Concomitant]
     Active Substance: CETIRIZINE HYDROCHLORIDE
  10. SENNA [Concomitant]
     Active Substance: SENNA LEAF\SENNOSIDES\SENNOSIDES A AND B
  11. IBUPROFEN [Concomitant]
     Active Substance: IBUPROFEN
  12. CLOBAZAM [Concomitant]
     Active Substance: CLOBAZAM
  13. ATROPINE SULFATE [Concomitant]
     Active Substance: ATROPINE SULFATE
  14. BANZEL [Concomitant]
     Active Substance: RUFINAMIDE
  15. SYMBICORT [Concomitant]
     Active Substance: BUDESONIDE\FORMOTEROL FUMARATE DIHYDRATE
  16. MIRALAX [Concomitant]
     Active Substance: POLYETHYLENE GLYCOL 3350
  17. PYRIDOXINE [Concomitant]
     Active Substance: PYRIDOXINE
  18. NIACIN [Concomitant]
     Active Substance: NIACIN
  19. ALBUTEROL SULFATE [Concomitant]
     Active Substance: ALBUTEROL SULFATE
  20. DIAZEPAM [Concomitant]
     Active Substance: DIAZEPAM
  21. MELATONIN [MELATONIN;PYRIDOXINE HYDROCHLORIDE] [Concomitant]

REACTIONS (2)
  - Respiratory failure [Fatal]
  - Unevaluable event [Unknown]

NARRATIVE: CASE EVENT DATE: 20240613
